FAERS Safety Report 22761519 (Version 6)
Quarter: 2024Q2

REPORT INFORMATION
  Report Type: Spontaneous
  Country: US (occurrence: US)
  Receive Date: 20230728
  Receipt Date: 20240530
  Transmission Date: 20240715
  Serious: Yes (Other)
  Sender: FDA-Public Use
  Company Number: US-SA-SAC20230727000815

PATIENT
  Age: 29 Year
  Sex: Male

DRUGS (4)
  1. ELOCTATE [Suspect]
     Active Substance: EFMOROCTOCOG ALFA
     Indication: Factor VIII deficiency
     Dosage: 3000 U (2700-3300), Q4D  FOR BLEEDS
     Route: 042
     Dates: start: 202307
  2. ELOCTATE [Suspect]
     Active Substance: EFMOROCTOCOG ALFA
     Indication: Factor VIII deficiency
     Dosage: 3000 U (2700-3300), Q4D  FOR BLEEDS
     Route: 042
     Dates: start: 202307
  3. ELOCTATE [Suspect]
     Active Substance: EFMOROCTOCOG ALFA
     Dosage: 3000 U (2700-3300), EVERY 12 TO 24 HOURS AS NEEDED (PRN) FOR BLEEDS
     Route: 042
     Dates: start: 202307
  4. ELOCTATE [Suspect]
     Active Substance: EFMOROCTOCOG ALFA
     Dosage: 3000 U (2700-3300), EVERY 12 TO 24 HOURS AS NEEDED (PRN) FOR BLEEDS
     Route: 042
     Dates: start: 202307

REACTIONS (13)
  - Haemorrhage [Not Recovered/Not Resolved]
  - Condition aggravated [Not Recovered/Not Resolved]
  - Haemorrhage [Not Recovered/Not Resolved]
  - Neuralgia [Unknown]
  - Hypoaesthesia [Unknown]
  - Paraesthesia [Unknown]
  - Gingival swelling [Unknown]
  - Peripheral swelling [Not Recovered/Not Resolved]
  - Condition aggravated [Not Recovered/Not Resolved]
  - Traumatic haemorrhage [Recovered/Resolved]
  - Limb injury [Recovered/Resolved]
  - Pain in extremity [Unknown]
  - Haemorrhage [Unknown]

NARRATIVE: CASE EVENT DATE: 20230701
